FAERS Safety Report 8941861 (Version 2)
Quarter: 2013Q1

REPORT INFORMATION
  Report Type: Spontaneous
  Country: US (occurrence: US)
  Receive Date: 20121203
  Receipt Date: 20130315
  Transmission Date: 20140127
  Serious: No
  Sender: FDA-Public Use
  Company Number: US-009507513-1211USA012530

PATIENT
  Sex: Female

DRUGS (1)
  1. NUVARING [Suspect]
     Indication: CONTRACEPTION
     Dosage: DELIVERS 0.015 ETONOGESTREL/0.012 ETHINYL ESTRADIOL
     Route: 067
     Dates: start: 20121024, end: 20121107

REACTIONS (1)
  - Cyanosis [Recovered/Resolved]
